FAERS Safety Report 17157932 (Version 1)
Quarter: 2019Q4

REPORT INFORMATION
  Report Type: Spontaneous
  Country: US (occurrence: US)
  Receive Date: 20191213
  Receipt Date: 20191213
  Transmission Date: 20200122
  Serious: Yes (Other)
  Sender: FDA-Public Use
  Company Number: None

PATIENT
  Age: 61 Year
  Sex: Female
  Weight: 76.95 kg

DRUGS (1)
  1. GAMMAPLEX [Suspect]
     Active Substance: HUMAN IMMUNOGLOBULIN G
     Indication: HYPOGAMMAGLOBULINAEMIA
     Dosage: ?          OTHER FREQUENCY:EVERY 3  WEEKS;?
     Route: 042
     Dates: start: 20191211, end: 20191211

REACTIONS (3)
  - Body temperature increased [None]
  - Arthralgia [None]
  - Chills [None]

NARRATIVE: CASE EVENT DATE: 20191212
